FAERS Safety Report 6088449-5 (Version None)
Quarter: 2009Q1

REPORT INFORMATION
  Report Type: 
  Country: None (occurrence: None)
  Receive Date: 20090224
  Receipt Date: 20090220
  Transmission Date: 20090719
  Serious: Yes (Hospitalization)
  Sender: FDA-Public Use
  Company Number: DE-WYE-G03159509

PATIENT
  Age: 76 Year
  Sex: Male

DRUGS (3)
  1. TREVILOR RETARD [Suspect]
     Dosage: OVERDOSE AMOUNT UNKNOWN
     Route: 048
     Dates: start: 20090219, end: 20090219
  2. ETHANOL [Suspect]
     Dosage: UNKNOWN AMOUNT OF WODKA (OVERDOSE AMOUNT UNKNOWN)
     Route: 048
     Dates: start: 20090219, end: 20090219
  3. AGGRENOX [Suspect]
     Dosage: 40 CAPSULES (OVERDOSE AMOUNT 8000 MG DIPYRIDAMOLE/1000 MG ACETYLSALICYLIC ACID)
     Route: 048
     Dates: start: 20090219, end: 20090219

REACTIONS (4)
  - INTENTIONAL OVERDOSE [None]
  - LOSS OF CONSCIOUSNESS [None]
  - OXYGEN SATURATION DECREASED [None]
  - SUICIDE ATTEMPT [None]
